FAERS Safety Report 19070714 (Version 1)
Quarter: 2021Q1

REPORT INFORMATION
  Report Type: Spontaneous
  Country: JP (occurrence: JP)
  Receive Date: 20210330
  Receipt Date: 20210330
  Transmission Date: 20210420
  Serious: Yes (Hospitalization, Other)
  Sender: FDA-Public Use
  Company Number: JP-APOTEX-2021AP007357

PATIENT
  Age: 64 Year
  Sex: Male

DRUGS (6)
  1. FLUNITRAZEPAM [Concomitant]
     Active Substance: FLUNITRAZEPAM
     Indication: PRODUCT USED FOR UNKNOWN INDICATION
     Dosage: 4 MG, QD, BEFORE BEDTIME
     Route: 065
  2. EPINASTINE. [Concomitant]
     Active Substance: EPINASTINE HYDROCHLORIDE
     Indication: PRODUCT USED FOR UNKNOWN INDICATION
     Dosage: 20 MG, QD, EVENING
     Route: 065
  3. PAXIL CR [Suspect]
     Active Substance: PAROXETINE HYDROCHLORIDE
     Indication: DEPRESSION
     Dosage: 25 MG, QD
     Route: 048
  4. ANAFRANIL [Suspect]
     Active Substance: CLOMIPRAMINE HYDROCHLORIDE
     Indication: PRODUCT USED FOR UNKNOWN INDICATION
     Dosage: 125 MG, ONE TABLET IN THE MORNING, ONE TABLET IN THE AFTERNOON, THREE TABLETS BEFORE BEDTIME
     Route: 065
  5. TRIAZOLAM. [Concomitant]
     Active Substance: TRIAZOLAM
     Indication: PRODUCT USED FOR UNKNOWN INDICATION
     Dosage: 0.5 MG, QD, BEFORE BEDTIME
     Route: 065
  6. ETIZOLAM [Concomitant]
     Active Substance: ETIZOLAM
     Indication: PRODUCT USED FOR UNKNOWN INDICATION
     Dosage: 1 DF, TID, MORNING AND EVENING, BEFORE BEDTIME
     Route: 065

REACTIONS (6)
  - Fall [Unknown]
  - Dysphagia [Unknown]
  - Pyrexia [Unknown]
  - Alcoholism [Unknown]
  - Neuroleptic malignant syndrome [Unknown]
  - Head injury [Unknown]
